FAERS Safety Report 6677342-2 (Version None)
Quarter: 2010Q2

REPORT INFORMATION
  Report Type: 
  Country: None (occurrence: None)
  Receive Date: 20100412
  Receipt Date: 20100401
  Transmission Date: 20101027
  Serious: Yes (Death)
  Sender: FDA-Public Use
  Company Number: GXKR2010US03865

PATIENT
  Age: 61 Year
  Sex: Male

DRUGS (5)
  1. PACLITAXEL (NGX) [Suspect]
     Indication: BLADDER CANCER
     Dosage: 200 MG/M2 ON DAY 1
  2. CARBOPLATIN [Suspect]
     Indication: BLADDER CANCER
     Dosage: AUC 5 ON DAY 1
  3. GEMCITABINE (NGX) [Suspect]
     Indication: BLADDER CANCER
     Dosage: 800 MG/M2 ON DAY 1 AND 8
  4. TRASTUZUMAB [Suspect]
     Indication: BLADDER CANCER
     Dosage: LOADING DOSE: 4 MG/KG
  5. TRASTUZUMAB [Suspect]
     Dosage: 2 MG/KG ON DAY 1, 8 AND 15

REACTIONS (6)
  - CEREBROSPINAL FLUID RESERVOIR PLACEMENT [None]
  - LOSS OF PROPRIOCEPTION [None]
  - METASTASES TO CENTRAL NERVOUS SYSTEM [None]
  - METASTASES TO MENINGES [None]
  - PARAESTHESIA [None]
  - PERIPHERAL SENSORY NEUROPATHY [None]
